FAERS Safety Report 24743236 (Version 1)
Quarter: 2024Q4

REPORT INFORMATION
  Report Type: Spontaneous
  Country: US (occurrence: None)
  Receive Date: 20241216
  Receipt Date: 20241216
  Transmission Date: 20250115
  Serious: Yes (Other)
  Sender: Public
  Company Number: None

PATIENT
  Age: 58 Year
  Sex: Male

DRUGS (1)
  1. ADALIMUMAB-ADAZ [Suspect]
     Active Substance: ADALIMUMAB-ADAZ
     Dates: start: 20240610, end: 20241216

REACTIONS (3)
  - Pruritus [None]
  - Sinus headache [None]
  - Respiratory disorder [None]

NARRATIVE: CASE EVENT DATE: 20241216
